FAERS Safety Report 21945524 (Version 2)
Quarter: 2023Q1

REPORT INFORMATION
  Report Type: Spontaneous
  Country: US (occurrence: None)
  Receive Date: 20230202
  Receipt Date: 20230314
  Transmission Date: 20230418
  Serious: Yes (Other)
  Sender: FDA-Public Use
  Company Number: 2023A023518

PATIENT
  Age: 26912 Day
  Sex: Female

DRUGS (4)
  1. BREZTRI [Suspect]
     Active Substance: BUDESONIDE\FORMOTEROL\GLYCOPYRROLATE
     Indication: Chronic obstructive pulmonary disease
     Route: 055
  2. PROAIR HFA [Concomitant]
     Active Substance: ALBUTEROL SULFATE
     Indication: Wheezing
     Route: 055
  3. OXYGEN CONCENTRATOR [Concomitant]
     Route: 055
  4. ZINC [Concomitant]
     Active Substance: ZINC

REACTIONS (13)
  - Dyspnoea [Unknown]
  - Wheezing [Unknown]
  - Dyspnoea [Unknown]
  - Lung disorder [Unknown]
  - Emphysema [Unknown]
  - Malaise [Unknown]
  - COVID-19 [Unknown]
  - Diarrhoea [Unknown]
  - Bronchitis chronic [Unknown]
  - Asthma [Unknown]
  - Wrong technique in device usage process [Unknown]
  - Intentional device use issue [Unknown]
  - Device delivery system issue [Unknown]

NARRATIVE: CASE EVENT DATE: 20221231
